FAERS Safety Report 17865510 (Version 1)
Quarter: 2020Q2

REPORT INFORMATION
  Report Type: Spontaneous
  Country: US (occurrence: US)
  Receive Date: 20200605
  Receipt Date: 20200605
  Transmission Date: 20200714
  Serious: Yes (Death, Other)
  Sender: FDA-Public Use
  Company Number: None

PATIENT
  Age: 75 Year
  Sex: Female
  Weight: 57.2 kg

DRUGS (24)
  1. REMDESIVIR. [Suspect]
     Active Substance: REMDESIVIR
     Indication: COVID-19
     Route: 041
     Dates: start: 20200526, end: 20200531
  2. OMEPRAZOLE. [Concomitant]
     Active Substance: OMEPRAZOLE
     Dates: start: 20200525, end: 20200530
  3. SENNA TABLET [Concomitant]
     Dates: start: 20200524, end: 20200531
  4. QUETIAPINE. [Concomitant]
     Active Substance: QUETIAPINE
     Dates: start: 20200529, end: 20200529
  5. POLYETHYLENE GLYCOL [Concomitant]
     Active Substance: POLYETHYLENE GLYCOLS
     Dates: start: 20200526, end: 20200531
  6. SUCCINYLCHOLINE [Concomitant]
     Active Substance: SUCCINYLCHOLINE
     Dates: start: 20200529, end: 20200529
  7. MELATONIN [Concomitant]
     Active Substance: MELATONIN
     Dates: start: 20200524, end: 20200531
  8. FUROSEMIDE. [Concomitant]
     Active Substance: FUROSEMIDE
     Dates: start: 20200525, end: 20200530
  9. ACETAMINOPHEN. [Concomitant]
     Active Substance: ACETAMINOPHEN
     Dates: start: 20200524, end: 20200529
  10. FLUOXETINE [Concomitant]
     Active Substance: FLUOXETINE HYDROCHLORIDE
     Dates: start: 20200524, end: 20200531
  11. PROPOFOL. [Concomitant]
     Active Substance: PROPOFOL
     Dates: start: 20200529, end: 20200531
  12. REMDESIVIR. [Suspect]
     Active Substance: REMDESIVIR
     Indication: ACUTE RESPIRATORY DISTRESS SYNDROME
     Dosage: ?          OTHER FREQUENCY:ONCE-LOADING DOSE;?
     Route: 041
     Dates: start: 20200525, end: 20200525
  13. DOCUSATE SODIUM. [Concomitant]
     Active Substance: DOCUSATE SODIUM
     Dates: start: 20200524, end: 20200531
  14. CEFTRIAXONE. [Concomitant]
     Active Substance: CEFTRIAXONE
     Dates: start: 20200524, end: 20200528
  15. POTASSIUM CHOLRIDE [Concomitant]
     Dates: start: 20200524, end: 20200530
  16. DONEPEZIL. [Concomitant]
     Active Substance: DONEPEZIL
     Dates: start: 20200524, end: 20200531
  17. REMDESIVIR. [Suspect]
     Active Substance: REMDESIVIR
     Indication: COVID-19
     Dosage: ?          OTHER FREQUENCY:ONCE-LOADING DOSE;?
     Route: 041
     Dates: start: 20200525, end: 20200525
  18. REMDESIVIR. [Suspect]
     Active Substance: REMDESIVIR
     Indication: ACUTE RESPIRATORY DISTRESS SYNDROME
     Route: 041
     Dates: start: 20200526, end: 20200531
  19. DOXYCYCLINE. [Concomitant]
     Active Substance: DOXYCYCLINE
     Dates: start: 20200525, end: 20200529
  20. ENOXAPARIN [Concomitant]
     Active Substance: ENOXAPARIN
     Dates: start: 20200524, end: 20200531
  21. FENTANYL. [Concomitant]
     Active Substance: FENTANYL
     Dates: start: 20200529, end: 20200531
  22. ETOMIDATE. [Concomitant]
     Active Substance: ETOMIDATE
     Dates: start: 20200529, end: 20200529
  23. CONVALESCENT PLASMA [Concomitant]
     Active Substance: HUMAN PLASMA
     Dates: start: 20200525, end: 20200528
  24. RISPERIDONE. [Concomitant]
     Active Substance: RISPERIDONE
     Dates: start: 20200524, end: 20200531

REACTIONS (4)
  - Pulmonary embolism [None]
  - Disseminated intravascular coagulation [None]
  - Shock [None]
  - Dyspnoea [None]

NARRATIVE: CASE EVENT DATE: 20200530
